FAERS Safety Report 8793619 (Version 2)
Quarter: 2012Q4

REPORT INFORMATION
  Report Type: 
  Country: AU (occurrence: AU)
  Receive Date: 20120917
  Receipt Date: 20120926
  Transmission Date: 20130627
  Serious: Yes (Hospitalization)
  Sender: FDA-Public Use
  Company Number: AU-GLAXOSMITHKLINE-B0829991A

PATIENT
  Age: 51 None
  Sex: Male
  Weight: 69.5 kg

DRUGS (15)
  1. FLOLAN [Suspect]
     Indication: PULMONARY ARTERIAL HYPERTENSION
     Route: 065
     Dates: start: 201206
  2. WARFARIN [Suspect]
     Indication: PRODUCT USED FOR UNKNOWN INDICATION
     Route: 065
  3. IMMUNOSUPPRESSIVE [Concomitant]
     Route: 065
  4. SILDENAFIL [Concomitant]
     Dosage: 25MG Three times per day
     Route: 065
  5. AMBRISENTAN [Concomitant]
     Dosage: 10MG Per day
     Route: 065
  6. PREDNISOLONE [Concomitant]
     Dosage: 5MG Per day
     Route: 065
  7. MYCOPHENOLATE [Concomitant]
     Dosage: 250MG Twice per day
     Route: 065
  8. SPIRONOLACTONE [Concomitant]
     Dosage: 25MG Per day
     Route: 065
  9. BACTRIM DS [Concomitant]
     Route: 065
  10. FRUSEMIDE [Concomitant]
     Dosage: 40MG Per day
     Route: 065
  11. CALTRATE WITH VITAMIN D [Concomitant]
     Route: 065
  12. WARFARIN [Concomitant]
     Dosage: 7MG Per day
     Route: 065
  13. FESS [Concomitant]
     Dosage: 2SPR Three times per day
     Route: 065
  14. RISEDRONATE [Concomitant]
     Dosage: 35MG Weekly
     Route: 065
  15. PANADOL [Concomitant]
     Dosage: 1G As required
     Route: 065

REACTIONS (3)
  - Subdural haematoma [Not Recovered/Not Resolved]
  - Headache [Unknown]
  - Vomiting [Unknown]
